FAERS Safety Report 5024868-3 (Version None)
Quarter: 2006Q2

REPORT INFORMATION
  Report Type: 
  Country: None (occurrence: None)
  Receive Date: 20060613
  Receipt Date: 20060314
  Transmission Date: 20061013
  Serious: Yes (Hospitalization)
  Sender: FDA-Public Use
  Company Number: US-SANOFI-SYNTHELABO-A03200601385

PATIENT
  Age: 45 Year
  Sex: Female

DRUGS (6)
  1. ASPIRIN [Concomitant]
     Route: 048
  2. LEXAPRO [Concomitant]
     Dosage: UNK
     Route: 048
  3. COUMADIN [Concomitant]
     Dosage: UNK
     Route: 048
  4. NORVASC [Concomitant]
     Dosage: UNK
     Route: 048
  5. PROTONIX [Concomitant]
     Dosage: UNK
     Route: 048
  6. AMBIEN CR [Suspect]
     Indication: INSOMNIA
     Dosage: UNK
     Route: 048
     Dates: start: 20051219, end: 20051221

REACTIONS (4)
  - AMNESIA [None]
  - IMPAIRED DRIVING ABILITY [None]
  - ROAD TRAFFIC ACCIDENT [None]
  - SLEEP WALKING [None]
